FAERS Safety Report 9369227 (Version 1)
Quarter: 2013Q2

REPORT INFORMATION
  Report Type: Spontaneous
  Country: US (occurrence: None)
  Receive Date: 20130625
  Receipt Date: 20130625
  Transmission Date: 20140414
  Serious: Yes (Death)
  Sender: FDA-Public Use
  Company Number: None

PATIENT
  Sex: Female

DRUGS (1)
  1. AFINITOR 10MG NOVARTIS [Suspect]
     Indication: BREAST CANCER
     Dosage: 10MG, QAM, PO
     Route: 048
     Dates: start: 20130312

REACTIONS (1)
  - Death [None]
